FAERS Safety Report 8003649-2 (Version None)
Quarter: 2011Q4

REPORT INFORMATION
  Report Type: 
  Country: None (occurrence: None)
  Receive Date: 20111222
  Receipt Date: 20111214
  Transmission Date: 20120403
  Serious: Yes (Death)
  Sender: FDA-Public Use
  Company Number: TR-ACTELION-A-CH2011-58392

PATIENT
  Age: 55 Year
  Sex: Male

DRUGS (4)
  1. OXYGEN [Concomitant]
  2. DIURETICS [Concomitant]
  3. ANTITHROMBOTIC AGENTS [Concomitant]
  4. TRACLEER [Suspect]
     Indication: PULMONARY ARTERIAL HYPERTENSION
     Dosage: 62.5 MG, UNK
     Route: 048

REACTIONS (1)
  - RESPIRATORY FAILURE [None]
